FAERS Safety Report 13220507 (Version 1)
Quarter: 2017Q1

REPORT INFORMATION
  Report Type: Other
  Country: US (occurrence: US)
  Receive Date: 20170211
  Receipt Date: 20170211
  Transmission Date: 20170428
  Serious: No
  Sender: FDA-Public Use
  Company Number: US-ACORDA-ACO_129201_2016

PATIENT
  Sex: Female

DRUGS (1)
  1. AMPYRA [Suspect]
     Active Substance: DALFAMPRIDINE
     Indication: MULTIPLE SCLEROSIS
     Dosage: 10 MG, Q 12 HRS
     Route: 048

REACTIONS (7)
  - Gait disturbance [Unknown]
  - Nausea [Unknown]
  - Condition aggravated [Unknown]
  - Vomiting [Unknown]
  - Extra dose administered [Unknown]
  - Drug dose omission [Unknown]
  - Drug effect decreased [Unknown]
